FAERS Safety Report 16252777 (Version 2)
Quarter: 2019Q2

REPORT INFORMATION
  Report Type: Spontaneous
  Country: GB (occurrence: GB)
  Receive Date: 20190429
  Receipt Date: 20190430
  Transmission Date: 20190711
  Serious: Yes (Other)
  Sender: FDA-Public Use
  Company Number: GB-PFIZER INC-2017251552

PATIENT
  Age: 54 Year
  Sex: Female

DRUGS (4)
  1. MERONEM [Suspect]
     Active Substance: MEROPENEM
     Indication: DRUG THERAPY
  2. UNACIM (AMPICILLIN SODIUM\SULBACTAM SODIUM) [Suspect]
     Active Substance: AMPICILLIN SODIUM\SULBACTAM SODIUM
     Indication: THERAPY RESPONDER
  3. UNACIM (AMPICILLIN SODIUM\SULBACTAM SODIUM) [Suspect]
     Active Substance: AMPICILLIN SODIUM\SULBACTAM SODIUM
     Indication: BACTERIAL INFECTION
     Dosage: UNK
  4. MERONEM [Suspect]
     Active Substance: MEROPENEM
     Indication: BACTERIAL INFECTION
     Dosage: UNK

REACTIONS (4)
  - Contraindicated product administered [Unknown]
  - Weight decreased [Unknown]
  - Anaphylactic reaction [Unknown]
  - Asthenia [Unknown]
